FAERS Safety Report 23722767 (Version 1)
Quarter: 2024Q2

REPORT INFORMATION
  Report Type: Spontaneous
  Country: IT (occurrence: IT)
  Receive Date: 20240409
  Receipt Date: 20240409
  Transmission Date: 20240716
  Serious: Yes (Hospitalization)
  Sender: FDA-Public Use
  Company Number: None

PATIENT
  Age: 49 Year
  Sex: Male

DRUGS (14)
  1. LINEZOLID [Suspect]
     Active Substance: LINEZOLID
     Indication: Pneumonia
     Dosage: 1200 MG, 1X/DAY
     Route: 042
     Dates: start: 20240228, end: 20240313
  2. METOLAZONE [Concomitant]
     Active Substance: METOLAZONE
  3. DIGOXIN [Concomitant]
     Active Substance: DIGOXIN
  4. ALBUMIN HUMAN [Concomitant]
     Active Substance: ALBUMIN HUMAN
  5. SPIRONOLACTONE [Concomitant]
     Active Substance: SPIRONOLACTONE
     Indication: Hepatic cirrhosis
  6. RIFAXIMIN [Concomitant]
     Active Substance: RIFAXIMIN
  7. FUROSEMIDE [Concomitant]
     Active Substance: FUROSEMIDE
  8. ENTECAVIR [Concomitant]
     Active Substance: ENTECAVIR
     Indication: Chronic hepatitis B
  9. NORADRENALINA [NOREPINEPHRINE] [Concomitant]
  10. ENOXAPARIN [Concomitant]
     Active Substance: ENOXAPARIN
  11. WARFARIN [Concomitant]
     Active Substance: WARFARIN
  12. PANTOPRAZOLE SODIUM [Concomitant]
     Active Substance: PANTOPRAZOLE SODIUM
  13. CEFTOLOZANE [Concomitant]
     Active Substance: CEFTOLOZANE
     Indication: Pneumonia
     Dosage: 3 G OGNI 8H
     Route: 042
     Dates: start: 20240228, end: 20240313
  14. METRONIDAZOLE [Concomitant]
     Active Substance: METRONIDAZOLE
     Indication: Pneumonia
     Dosage: 500 MG OGNI 8H
     Route: 042
     Dates: start: 20240228, end: 20240313

REACTIONS (5)
  - Anaemia [Not Recovered/Not Resolved]
  - Thrombocytopenia [Not Recovered/Not Resolved]
  - Haemoglobin decreased [Unknown]
  - Reticulocyte count decreased [Unknown]
  - Reticulocyte percentage decreased [Unknown]

NARRATIVE: CASE EVENT DATE: 20240310
